FAERS Safety Report 19881368 (Version 12)
Quarter: 2022Q3

REPORT INFORMATION
  Report Type: Report from Study
  Country: US (occurrence: US)
  Receive Date: 20210925
  Receipt Date: 20220908
  Transmission Date: 20221026
  Serious: No
  Sender: FDA-Public Use
  Company Number: NVSC2021US217919

PATIENT
  Sex: Male

DRUGS (3)
  1. ENTRESTO [Suspect]
     Active Substance: SACUBITRIL\VALSARTAN
     Indication: Product used for unknown indication
     Dosage: 1 DF, BID(24/26 MG)
     Route: 048
     Dates: start: 20210913
  2. UNSPECIFIED INGREDIENT [Concomitant]
     Active Substance: UNSPECIFIED INGREDIENT
     Indication: Product used for unknown indication
     Dosage: UNK
     Route: 065
  3. DRAMAMINE [Concomitant]
     Active Substance: DIMENHYDRINATE
     Indication: Motion sickness
     Dosage: UNK
     Route: 065

REACTIONS (19)
  - Feeling abnormal [Recovering/Resolving]
  - Blood pressure systolic decreased [Unknown]
  - Weight decreased [Unknown]
  - Stress [Unknown]
  - Dyspnoea [Unknown]
  - Throat clearing [Unknown]
  - Fear [Unknown]
  - Joint stiffness [Recovering/Resolving]
  - Musculoskeletal stiffness [Recovering/Resolving]
  - Anxiety [Recovering/Resolving]
  - Dysstasia [Recovering/Resolving]
  - Alveolar osteitis [Unknown]
  - Heart rate decreased [Unknown]
  - Depressed mood [Unknown]
  - Fall [Unknown]
  - Blood pressure diastolic decreased [Unknown]
  - Dizziness [Unknown]
  - Inappropriate schedule of product administration [Unknown]
  - Product dose omission issue [Unknown]
